FAERS Safety Report 24605806 (Version 2)
Quarter: 2024Q4

REPORT INFORMATION
  Report Type: Report from Study
  Country: US (occurrence: US)
  Receive Date: 20241111
  Receipt Date: 20241127
  Transmission Date: 20250115
  Serious: Yes (Life-Threatening, Hospitalization)
  Sender: ALKERMES
  Company Number: US-ALKERMES INC.-ALK-2024-002858

PATIENT
  Age: 64 Year
  Sex: Male

DRUGS (9)
  1. BUPRENORPHINE [Suspect]
     Active Substance: BUPRENORPHINE
     Indication: Substance use disorder
     Dosage: 380 MILLIGRAM, Q3WK (WEEKS 0,3 + 6)
     Route: 030
     Dates: start: 20240909, end: 20241023
  2. INVESTIGATIONAL PRODUCT [Suspect]
     Active Substance: INVESTIGATIONAL PRODUCT
     Indication: Substance use disorder
     Dosage: 380 MILLIGRAM, Q3WK (WEEKS 0,3 + 6)
     Route: 030
     Dates: start: 20240909, end: 20241023
  3. VIVITROL [Suspect]
     Active Substance: NALTREXONE
     Indication: Substance use disorder
     Dosage: 380 MILLIGRAM, Q3WK (WEEKS 0,3 + 6)
     Route: 030
     Dates: start: 20240909, end: 20241023
  4. VIVITROL [Suspect]
     Active Substance: NALTREXONE
     Indication: Substance use disorder
     Dosage: 380 MILLIGRAM, Q3WK (WEEKS 0,3 + 6)
     Route: 030
     Dates: start: 20240909, end: 20241023
  5. BUPRENORPHINE [Suspect]
     Active Substance: BUPRENORPHINE
     Dosage: 300 MILLIGRAM, Q4WK, (WEEK 0,4)
     Route: 058
     Dates: start: 20240912, end: 20241010
  6. INVESTIGATIONAL PRODUCT [Suspect]
     Active Substance: INVESTIGATIONAL PRODUCT
     Dosage: 300 MILLIGRAM, Q4WK, (WEEK 0,4)
     Route: 058
     Dates: start: 20240912, end: 20241010
  7. VIVITROL [Suspect]
     Active Substance: NALTREXONE
     Dosage: 300 MILLIGRAM, Q4WK, (WEEK 0,4)
     Route: 058
     Dates: start: 20240912, end: 20241010
  8. VIVITROL [Suspect]
     Active Substance: NALTREXONE
     Dosage: 300 MILLIGRAM, Q4WK, (WEEK 0,4)
     Route: 058
     Dates: start: 20240912, end: 20241010
  9. METFORMIN [Concomitant]
     Active Substance: METFORMIN HYDROCHLORIDE
     Indication: Product used for unknown indication
     Dosage: UNK
     Route: 065

REACTIONS (1)
  - Cerebrovascular accident [Recovered/Resolved]

NARRATIVE: CASE EVENT DATE: 20241105
